FAERS Safety Report 9513219 (Version 1)
Quarter: 2013Q3

REPORT INFORMATION
  Report Type: Spontaneous
  Country: FR (occurrence: FR)
  Receive Date: 20130910
  Receipt Date: 20130910
  Transmission Date: 20140515
  Serious: Yes (Hospitalization)
  Sender: FDA-Public Use
  Company Number: FR-PFIZER INC-2013255243

PATIENT
  Age: 54 Year
  Sex: Female

DRUGS (4)
  1. FLUOROURACIL [Suspect]
     Indication: SMALL INTESTINE ADENOCARCINOMA
     Dosage: LAST COURSE MID FEB2013
     Route: 041
     Dates: end: 201302
  2. CAMPTO [Suspect]
     Indication: SMALL INTESTINE ADENOCARCINOMA
     Dosage: LAST COURSE MID FEB2013
     Route: 041
     Dates: end: 201302
  3. AVASTIN [Suspect]
     Indication: SMALL INTESTINE ADENOCARCINOMA
     Dosage: LAST COURSE MID FEB2013; 25 MG/ML
     Route: 041
     Dates: end: 201302
  4. FOLINIC ACID [Concomitant]
     Indication: SMALL INTESTINE ADENOCARCINOMA
     Dosage: UNK
     Dates: end: 201302

REACTIONS (1)
  - Skin necrosis [Recovering/Resolving]
